FAERS Safety Report 14798669 (Version 1)
Quarter: 2018Q2

REPORT INFORMATION
  Report Type: Report from Study
  Country: US (occurrence: US)
  Receive Date: 20180424
  Receipt Date: 20180424
  Transmission Date: 20180711
  Serious: Yes (Other)
  Sender: FDA-Public Use
  Company Number: US-FERRINGPH-2018FE01948

PATIENT

DRUGS (2)
  1. PITOCIN [Concomitant]
     Active Substance: OXYTOCIN
     Indication: PRODUCT USED FOR UNKNOWN INDICATION
     Route: 065
  2. DINOPROSTONE. [Suspect]
     Active Substance: DINOPROSTONE
     Indication: INDUCTION OF CERVIX RIPENING
     Dosage: UNKNOWN
     Route: 065

REACTIONS (3)
  - Meconium stain [Recovered/Resolved]
  - Uterine atony [Recovered/Resolved]
  - Contraindicated product administered [Recovered/Resolved]
